FAERS Safety Report 4282903-4 (Version None)
Quarter: 2004Q1

REPORT INFORMATION
  Report Type: 
  Country: None (occurrence: None)
  Receive Date: 20040130
  Receipt Date: 20031017
  Transmission Date: 20041129
  Serious: No
  Sender: FDA-Public Use
  Company Number: US-BRISTOL-MYERS SQUIBB COMPANY-12413589

PATIENT
  Age: 25 Year
  Sex: Female

DRUGS (1)
  1. SERZONE [Suspect]
     Indication: DEPRESSION
     Dosage: PT TAKING 3-100MG TABS AT BEDTIME FOR ABOUT 2 YRS
     Route: 048

REACTIONS (1)
  - VISUAL DISTURBANCE [None]
